FAERS Safety Report 5955020-2 (Version None)
Quarter: 2008Q4

REPORT INFORMATION
  Report Type: 
  Country: None (occurrence: None)
  Receive Date: 20081117
  Receipt Date: 20081110
  Transmission Date: 20090506
  Serious: Yes (Hospitalization)
  Sender: FDA-Public Use
  Company Number: A0734602A

PATIENT
  Age: 49 Year
  Sex: Male
  Weight: 90.9 kg

DRUGS (10)
  1. AVANDIA [Suspect]
     Dosage: 8MG TWICE PER DAY
     Route: 048
     Dates: start: 20010101, end: 20050101
  2. AVANDAMET [Suspect]
     Dosage: 8MG TWICE PER DAY
     Route: 048
     Dates: start: 20010101, end: 20050101
  3. GLUCOTROL [Concomitant]
     Dosage: 10MG TWICE PER DAY
     Dates: start: 20010101
  4. GLIPIZIDE [Concomitant]
     Dosage: 5MG IN THE MORNING
  5. HYDROCHLOROTHIAZIDE [Concomitant]
     Dosage: 12.5MG PER DAY
  6. ASPIRIN [Concomitant]
     Dosage: 325MG PER DAY
  7. NORVASC [Concomitant]
     Dosage: 5MG PER DAY
  8. PLAVIX [Concomitant]
  9. DIOVAN HCT [Concomitant]
  10. PLETAL [Concomitant]
     Dosage: 100MG PER DAY

REACTIONS (7)
  - ANXIETY [None]
  - CARDIAC FAILURE CONGESTIVE [None]
  - CHEST PAIN [None]
  - HEART INJURY [None]
  - MYOCARDIAL INFARCTION [None]
  - PAIN [None]
  - TRANSIENT ISCHAEMIC ATTACK [None]
